FAERS Safety Report 24004931 (Version 1)
Quarter: 2024Q2

REPORT INFORMATION
  Report Type: Spontaneous
  Country: US (occurrence: None)
  Receive Date: 20240621
  Receipt Date: 20240621
  Transmission Date: 20240715
  Serious: Yes (Life-Threatening, Hospitalization)
  Sender: FDA-Public Use
  Company Number: None

PATIENT
  Age: 60 Year
  Sex: Male
  Weight: 91 kg

DRUGS (1)
  1. LISINOPRIL [Suspect]
     Active Substance: LISINOPRIL
     Indication: Hypertension
     Dosage: 1/2 TAB  EVERY DAY PO? ?
     Route: 048
     Dates: start: 20230804, end: 20240112

REACTIONS (6)
  - Angioedema [None]
  - Cough [None]
  - Dyspnoea [None]
  - Speech disorder [None]
  - Throat tightness [None]
  - Salivary hypersecretion [None]

NARRATIVE: CASE EVENT DATE: 20240118
